FAERS Safety Report 10646295 (Version 1)
Quarter: 2014Q4

REPORT INFORMATION
  Report Type: Spontaneous
  Country: GB (occurrence: GB)
  Receive Date: 20141211
  Receipt Date: 20141211
  Transmission Date: 20150529
  Serious: Yes (Hospitalization)
  Sender: FDA-Public Use
  Company Number: GB-TEVA-526916ISR

PATIENT
  Age: 85 Year
  Sex: Female

DRUGS (9)
  1. WARFARIN [Interacting]
     Active Substance: WARFARIN
     Route: 048
  2. LACTULOSE. [Concomitant]
     Active Substance: LACTULOSE
     Dosage: 15ML THREE TIMES A DAY WHEN REQUIRED
     Route: 048
  3. PRAVASTATIN [Concomitant]
     Active Substance: PRAVASTATIN\PRAVASTATIN SODIUM
     Dosage: 20 MILLIGRAM DAILY; AT NIGHT
     Route: 048
  4. CANDESARTAN [Concomitant]
     Active Substance: CANDESARTAN
     Dosage: 4 MILLIGRAM DAILY; IN THE MORNING.
     Route: 048
  5. DIGOXIN. [Concomitant]
     Active Substance: DIGOXIN
     Dosage: 125 MICROGRAM DAILY; IN THE MORNING .
     Route: 048
  6. FUROSEMIDE. [Concomitant]
     Active Substance: FUROSEMIDE
     Dosage: 40 MILLIGRAM DAILY; IN THE MORNING.
     Route: 048
  7. ADCAL-D3 [Concomitant]
     Active Substance: CALCIUM CARBONATE\CHOLECALCIFEROL
     Dosage: 1 DOSAGE FORMS DAILY; AT NIGHT
     Route: 048
  8. TRAMADOL [Suspect]
     Active Substance: TRAMADOL
     Dosage: 50MG FOUR TIMES A DAY WHEN REQUIRED
     Route: 048
  9. BUTRANS [Concomitant]
     Active Substance: BUPRENORPHINE
     Dosage: 2.8571 MICROGRAM DAILY;
     Route: 061

REACTIONS (3)
  - Epistaxis [Recovered/Resolved]
  - International normalised ratio increased [Unknown]
  - Drug interaction [Unknown]
